FAERS Safety Report 7041782-2 (Version None)
Quarter: 2010Q4

REPORT INFORMATION
  Report Type: 
  Country: None (occurrence: None)
  Receive Date: 20101013
  Receipt Date: 20100115
  Transmission Date: 20110411
  Serious: No
  Sender: FDA-Public Use
  Company Number: US-ASTRAZENECA-2010SE02059

PATIENT
  Age: 51 Year
  Sex: Female

DRUGS (5)
  1. SYMBICORT [Suspect]
     Indication: BRONCHIECTASIS
     Dosage: 160/4.5 UG TWO PUFFS TWICE A DAY
     Route: 055
     Dates: start: 20091201
  2. CIPRO [Suspect]
     Indication: BRONCHIECTASIS
     Dates: start: 20091201
  3. INSULIN [Concomitant]
  4. BONIVA [Concomitant]
  5. IPRATROPIUM BROMIDE [Concomitant]

REACTIONS (3)
  - DYSPNOEA [None]
  - HYPERSENSITIVITY [None]
  - URTICARIA [None]
